FAERS Safety Report 25449679 (Version 1)
Quarter: 2025Q2

REPORT INFORMATION
  Report Type: Spontaneous
  Country: US (occurrence: US)
  Receive Date: 20250618
  Receipt Date: 20250618
  Transmission Date: 20250716
  Serious: Yes (Other)
  Sender: BRISTOL-MYERS SQUIBB COMPANY
  Company Number: US-BRISTOL-MYERS SQUIBB COMPANY-2025-084059

PATIENT
  Age: 31 Year
  Sex: Female

DRUGS (1)
  1. COBENFY [Suspect]
     Active Substance: TROSPIUM CHLORIDE\XANOMELINE
     Indication: Product used for unknown indication
     Dosage: 125MG-30MG BID
     Route: 048

REACTIONS (3)
  - Drug ineffective [Unknown]
  - Hallucination, auditory [Not Recovered/Not Resolved]
  - Psychotic disorder [Not Recovered/Not Resolved]
